FAERS Safety Report 24266672 (Version 3)
Quarter: 2024Q4

REPORT INFORMATION
  Report Type: Spontaneous
  Country: DE (occurrence: DE)
  Receive Date: 20240830
  Receipt Date: 20241031
  Transmission Date: 20250114
  Serious: Yes (Life-Threatening, Hospitalization)
  Sender: EMD SERONO INC
  Company Number: DE-DCGMA-24203763

PATIENT
  Age: 81 Year
  Sex: Female
  Weight: 75 kg

DRUGS (14)
  1. BAVENCIO [Suspect]
     Active Substance: AVELUMAB
     Indication: Neuroendocrine carcinoma of the skin
     Route: 042
     Dates: start: 20240522, end: 20240704
  2. ANASTROZOLE [Concomitant]
     Active Substance: ANASTROZOLE
     Indication: Breast cancer
     Route: 048
     Dates: start: 202403
  3. XIPAMIDE [Concomitant]
     Active Substance: XIPAMIDE
     Indication: Hypertension
     Route: 048
  4. METOPROLOL [Concomitant]
     Active Substance: METOPROLOL
     Indication: Hypertension
     Dosage: 2 X 47.5 MG
     Route: 048
  5. MCP [Concomitant]
     Active Substance: METOCLOPRAMIDE HYDROCHLORIDE
     Indication: Product used for unknown indication
     Route: 048
  6. MOVICOL [Concomitant]
     Active Substance: POLYETHYLENE GLYCOL 3350\POTASSIUM CHLORIDE\SODIUM BICARBONATE\SODIUM CHLORIDE
     Indication: Product used for unknown indication
     Route: 050
  7. CITRIC ACID MONOHYDRATE\POTASSIUM BICARBONATE\POTASSIUM CITRATE [Concomitant]
     Active Substance: CITRIC ACID MONOHYDRATE\POTASSIUM BICARBONATE\POTASSIUM CITRATE
     Indication: Product used for unknown indication
     Route: 050
  8. APIXABAN [Concomitant]
     Active Substance: APIXABAN
     Indication: Atrial fibrillation
     Route: 048
  9. AMLODIPINE [Concomitant]
     Active Substance: AMLODIPINE BESYLATE
     Indication: Product used for unknown indication
     Route: 048
  10. MAGNETRANS [MAGNESIUM ASPARTATE] [Concomitant]
     Indication: Product used for unknown indication
     Route: 050
  11. METAMIZOLE [Concomitant]
     Active Substance: METAMIZOLE
     Indication: Product used for unknown indication
     Dosage: 500 MG 4XTGL.
     Route: 048
  12. ENALAPRIL [Concomitant]
     Active Substance: ENALAPRIL
     Indication: Product used for unknown indication
     Route: 048
  13. ZOPICLONE [Concomitant]
     Active Substance: ZOPICLONE
     Indication: Product used for unknown indication
     Route: 048
  14. AMLO TAD BESILAT [Concomitant]
     Indication: Product used for unknown indication

REACTIONS (1)
  - Encephalitis [Not Recovered/Not Resolved]

NARRATIVE: CASE EVENT DATE: 20240711
